FAERS Safety Report 19008933 (Version 3)
Quarter: 2021Q3

REPORT INFORMATION
  Report Type: Report from Study
  Country: GB (occurrence: GB)
  Receive Date: 20210316
  Receipt Date: 20210724
  Transmission Date: 20211014
  Serious: Yes (Hospitalization, Other)
  Sender: FDA-Public Use
  Company Number: GB-TEVA-2021-GB-1887068

PATIENT
  Age: 54 Year
  Sex: Female

DRUGS (22)
  1. TRASTUZUMAB. [Suspect]
     Active Substance: TRASTUZUMAB
     Indication: BREAST CANCER METASTATIC
     Dosage: 600 MILLIGRAM IN EVERY 3 WEEKS
     Route: 041
     Dates: start: 20170316, end: 20171130
  2. DALTEPARIN [Concomitant]
     Active Substance: DALTEPARIN
     Indication: PROPHYLAXIS
     Dosage: 2 PERCENT DAILY;
     Route: 061
     Dates: start: 20170327, end: 20170328
  3. HYDROCORTISONE. [Concomitant]
     Active Substance: HYDROCORTISONE
     Indication: PREMEDICATION
     Dosage: FREQUENCY: ONCE BEFORE TREATMENT, 1 PERCENT
     Route: 061
     Dates: start: 2015
  4. ONDANSETRON [Concomitant]
     Active Substance: ONDANSETRON
     Indication: PROPHYLAXIS OF NAUSEA AND VOMITING
     Dosage: 16 MILLIGRAM DAILY;
     Route: 048
     Dates: start: 20170316
  5. DEXAMETHASONE. [Concomitant]
     Active Substance: DEXAMETHASONE
     Dosage: 16 MILLIGRAM DAILY;
     Route: 048
     Dates: start: 20170315
  6. PARACETAMOL [Concomitant]
     Active Substance: ACETAMINOPHEN
     Indication: PREMEDICATION
     Dosage: FREQUENCY: ONCE BEFORE TREATMENT, 1000 MILLIGRAM
     Route: 048
     Dates: start: 20170316
  7. DOCETAXEL. [Suspect]
     Active Substance: DOCETAXEL
     Indication: BREAST CANCER METASTATIC
     Dosage: 120 MG IN EVERY 3 WKS
     Route: 042
     Dates: start: 20170316, end: 20170629
  8. PERTUZUMAB. [Suspect]
     Active Substance: PERTUZUMAB
     Dosage: FREQUENCY: OTHER, 840 MILLIGRAM
     Route: 042
     Dates: start: 20170316, end: 20170316
  9. DEXAMETHASONE. [Concomitant]
     Active Substance: DEXAMETHASONE
     Dosage: 1 MILLIGRAM DAILY;
     Route: 048
     Dates: start: 201811, end: 20181113
  10. METOCLOPRAMIDE. [Concomitant]
     Active Substance: METOCLOPRAMIDE
     Indication: PROPHYLAXIS OF NAUSEA AND VOMITING
     Dosage: 30 MILLIGRAM DAILY;
     Route: 048
     Dates: start: 20170316
  11. DENOSUMAB [Concomitant]
     Active Substance: DENOSUMAB
     Indication: BONE DISORDER
     Dosage: 120 MILLIGRAM IN EVERY 6 WEEKS
     Route: 058
     Dates: start: 20180111
  12. DEXAMETHASONE. [Concomitant]
     Active Substance: DEXAMETHASONE
     Indication: PROPHYLAXIS OF NAUSEA AND VOMITING
     Dosage: FREQUENCY: ONCE BEFORE TREATMENT, 6.6 MILLIGRAM
     Route: 042
     Dates: start: 20170316
  13. APREPITANT. [Concomitant]
     Active Substance: APREPITANT
     Indication: PREMEDICATION
     Dosage: 250 MILLIGRAM DAILY; FREQUENCY: ONCE BEFORE TREATMENT
     Route: 048
     Dates: start: 20170316
  14. GRANISETRON [Concomitant]
     Active Substance: GRANISETRON
     Indication: PREMEDICATION
     Dosage: FREQUENCY: ONCE BEFORE TREATMENT, 1 MILLIGRAM
     Route: 042
     Dates: start: 20170316
  15. PERTUZUMAB. [Suspect]
     Active Substance: PERTUZUMAB
     Indication: BREAST CANCER METASTATIC
     Dosage: 420 MG IN EVERY 3 WEEKS
     Route: 042
     Dates: start: 20170406
  16. CHLORPHENAMINE [Concomitant]
     Active Substance: CHLORPHENIRAMINE MALEATE
     Indication: PREMEDICATION
     Dosage: FREQUENCY: ONCE BEFORE TREATMENT, 10 MILLIGRAM
     Route: 042
     Dates: start: 20170316
  17. NYSTATIN. [Concomitant]
     Active Substance: NYSTATIN
     Dosage: DOSE: 100000 U IN A DAY
     Route: 048
     Dates: start: 20190603
  18. TRASTUZUMAB. [Suspect]
     Active Substance: TRASTUZUMAB
     Dosage: 600 MILLIGRAM IN EVERY 3 WEEKS
     Route: 058
     Dates: start: 20170316, end: 20171130
  19. TRASTUZUMAB. [Suspect]
     Active Substance: TRASTUZUMAB
     Dosage: 350 MILLIGRAM IN EVERY 3 WEEKS
     Route: 041
     Dates: start: 20171220
  20. DEXAMETHASONE. [Concomitant]
     Active Substance: DEXAMETHASONE
     Indication: PREMEDICATION
     Dosage: 0.5 MILLIGRAM IN EVERY 2 DAYS
     Route: 048
     Dates: start: 20190601
  21. DEXAMETHASONE. [Concomitant]
     Active Substance: DEXAMETHASONE
     Dosage: .5 MILLIGRAM DAILY;
     Route: 048
     Dates: start: 20181113
  22. SODIUM FUSIDATE [Concomitant]
     Active Substance: FUSIDATE SODIUM
     Dosage: 2 PERCENT DAILY;
     Route: 061
     Dates: start: 20170324, end: 20170328

REACTIONS (11)
  - Malaise [Recovered/Resolved]
  - Fatigue [Recovered/Resolved]
  - Onychalgia [Recovered/Resolved]
  - Decreased appetite [Not Recovered/Not Resolved]
  - Alopecia [Recovered/Resolved]
  - Pain in jaw [Recovered/Resolved]
  - Hypernatraemia [Recovered/Resolved]
  - Haematemesis [Recovered/Resolved]
  - Nausea [Not Recovered/Not Resolved]
  - Neutropenia [Recovered/Resolved]
  - Candida infection [Recovered/Resolved]

NARRATIVE: CASE EVENT DATE: 201703
